FAERS Safety Report 12524543 (Version 3)
Quarter: 2016Q3

REPORT INFORMATION
  Report Type: Spontaneous
  Country: GB (occurrence: GB)
  Receive Date: 20160704
  Receipt Date: 20160715
  Transmission Date: 20161109
  Serious: Yes (Other)
  Sender: FDA-Public Use
  Company Number: PHHY2016GB087965

PATIENT
  Age: 49 Year
  Sex: Male

DRUGS (13)
  1. EFFEXOR [Concomitant]
     Active Substance: VENLAFAXINE HYDROCHLORIDE
     Indication: PRODUCT USED FOR UNKNOWN INDICATION
     Route: 065
     Dates: start: 19980601
  2. PAROXETINE HYDROCHLORIDE. [Suspect]
     Active Substance: PAROXETINE HYDROCHLORIDE
     Dosage: 20 MG, QD
     Route: 065
  3. SEROXAT [Suspect]
     Active Substance: PAROXETINE HYDROCHLORIDE
     Dosage: 20 MG, BID
     Route: 065
     Dates: start: 20070831, end: 20100729
  4. SEROXAT [Suspect]
     Active Substance: PAROXETINE HYDROCHLORIDE
     Route: 065
  5. PAXIL [Suspect]
     Active Substance: PAROXETINE HYDROCHLORIDE
     Dosage: 25 MG, QD
     Route: 065
  6. PAXIL [Suspect]
     Active Substance: PAROXETINE HYDROCHLORIDE
     Indication: PRODUCT USED FOR UNKNOWN INDICATION
     Route: 065
  7. PAXIL [Suspect]
     Active Substance: PAROXETINE HYDROCHLORIDE
     Dosage: 20 MG, QD
     Route: 065
     Dates: start: 20100810, end: 20151022
  8. PAXIL [Suspect]
     Active Substance: PAROXETINE HYDROCHLORIDE
     Dosage: 20 MG, BID
     Route: 065
     Dates: start: 20070831, end: 20100729
  9. SEROXAT [Suspect]
     Active Substance: PAROXETINE HYDROCHLORIDE
     Dosage: 20 MG, QD
     Route: 065
     Dates: start: 20100810, end: 20151022
  10. PAROXETINE HYDROCHLORIDE. [Suspect]
     Active Substance: PAROXETINE HYDROCHLORIDE
     Indication: PANIC ATTACK
     Dosage: UNK
     Route: 065
     Dates: start: 19980603
  11. PAROXETINE HYDROCHLORIDE. [Suspect]
     Active Substance: PAROXETINE HYDROCHLORIDE
     Dosage: 20 MG, BID
     Route: 065
  12. SEROXAT [Suspect]
     Active Substance: PAROXETINE HYDROCHLORIDE
     Indication: DEPRESSION
     Dosage: 25 MG, QD
  13. CIPRAMIL//CITALOPRAM HYDROBROMIDE [Concomitant]
     Active Substance: CITALOPRAM HYDROBROMIDE
     Indication: PRODUCT USED FOR UNKNOWN INDICATION
     Route: 065
     Dates: start: 19960917

REACTIONS (13)
  - Blindness transient [Unknown]
  - Irritability [Unknown]
  - Agitation [Unknown]
  - Paraesthesia [Unknown]
  - Dizziness [Unknown]
  - Nightmare [Unknown]
  - Memory impairment [Unknown]
  - Disturbance in attention [Unknown]
  - Drug withdrawal syndrome [Unknown]
  - Metamorphopsia [Unknown]
  - Fatigue [Unknown]
  - Weight increased [Unknown]
  - Mood swings [Unknown]

NARRATIVE: CASE EVENT DATE: 20000602
